FAERS Safety Report 6693137-8 (Version None)
Quarter: 2010Q2

REPORT INFORMATION
  Report Type: 
  Country: None (occurrence: None)
  Receive Date: 20100422
  Receipt Date: 20100413
  Transmission Date: 20101027
  Serious: Yes (Other)
  Sender: FDA-Public Use
  Company Number: GB-ABBOTT-10P-167-0632215-00

PATIENT
  Age: 56 Year
  Sex: Male

DRUGS (2)
  1. DEPAKOTE [Suspect]
     Indication: BIPOLAR DISORDER
     Route: 048
  2. ABILIFY [Suspect]
     Indication: BIPOLAR DISORDER
     Dosage: DAILY
     Route: 048
     Dates: start: 20090921, end: 20091221

REACTIONS (2)
  - COORDINATION ABNORMAL [None]
  - HEMIPARESIS [None]
